FAERS Safety Report 24181928 (Version 1)
Quarter: 2024Q3

REPORT INFORMATION
  Report Type: Spontaneous
  Country: JP (occurrence: JP)
  Receive Date: 20240807
  Receipt Date: 20240807
  Transmission Date: 20241016
  Serious: Yes (Other)
  Sender: ROCHE
  Company Number: JP-ROCHE-3579669

PATIENT
  Age: 66 Year
  Sex: Male

DRUGS (5)
  1. ERLOTINIB [Suspect]
     Active Substance: ERLOTINIB
     Indication: Lung adenocarcinoma
     Route: 048
  2. CARBOPLATIN [Concomitant]
     Active Substance: CARBOPLATIN
     Indication: Lung adenocarcinoma
     Dosage: 4 CYCLES
  3. ETOPOSIDE [Concomitant]
     Active Substance: ETOPOSIDE
     Indication: Lung adenocarcinoma
     Dosage: 4 CYCLES
  4. AMRUBICIN [Concomitant]
     Active Substance: AMRUBICIN
     Indication: Lung adenocarcinoma
     Dosage: 14 CYCLES
  5. IRINOTECAN [Concomitant]
     Active Substance: IRINOTECAN
     Indication: Lung adenocarcinoma
     Dosage: 2 CYCLES

REACTIONS (4)
  - Disease progression [Unknown]
  - Metastases to bone [Unknown]
  - EGFR gene mutation [Unknown]
  - Drug resistance [Unknown]
